FAERS Safety Report 9643104 (Version 1)
Quarter: 2013Q4

REPORT INFORMATION
  Report Type: Spontaneous
  Country: US (occurrence: US)
  Receive Date: 20131024
  Receipt Date: 20131024
  Transmission Date: 20140711
  Serious: No
  Sender: FDA-Public Use
  Company Number: US-009507513-1310USA010808

PATIENT
  Age: 3 Year
  Sex: Male

DRUGS (2)
  1. CLARITIN ORAL SOLUTION [Suspect]
     Indication: PRODUCT USED FOR UNKNOWN INDICATION
     Dosage: UNK, ONCE
     Route: 048
     Dates: start: 20131016
  2. CLARITIN ORAL SOLUTION [Suspect]
     Dosage: UNK, ONCE
     Route: 048
     Dates: start: 20131015

REACTIONS (1)
  - Accidental overdose [Unknown]
